FAERS Safety Report 7587579-6 (Version None)
Quarter: 2011Q3

REPORT INFORMATION
  Report Type: 
  Country: None (occurrence: None)
  Receive Date: 20110704
  Receipt Date: 20110621
  Transmission Date: 20111222
  Serious: Yes (Other)
  Sender: FDA-Public Use
  Company Number: PHHY2011RS54603

PATIENT
  Sex: Female

DRUGS (7)
  1. INSULIN [Concomitant]
     Indication: DIABETES MELLITUS
     Dosage: UNK
     Route: 058
  2. CLIACIL [Concomitant]
     Indication: INFECTION
     Route: 048
  3. EXJADE [Suspect]
     Dosage: 500 MG, BID
     Dates: start: 20101208, end: 20110505
  4. EXJADE [Suspect]
     Dosage: 500 MG, DAILY
     Dates: start: 20110520
  5. PALITREX [Concomitant]
     Indication: INFECTION
     Dosage: UNK
     Route: 048
  6. EXJADE [Suspect]
     Indication: IRON OVERLOAD
     Dosage: 500 MG, BID
     Dates: start: 20100723
  7. EXJADE [Suspect]
     Dosage: 500 MG, DAILY
     Dates: start: 20100820

REACTIONS (3)
  - PANCYTOPENIA [None]
  - THROMBOCYTOPENIA [None]
  - LEUKOPENIA [None]
